FAERS Safety Report 10514562 (Version 2)
Quarter: 2014Q4

REPORT INFORMATION
  Report Type: Report from Study
  Country: BR (occurrence: BR)
  Receive Date: 20141013
  Receipt Date: 20141030
  Transmission Date: 20150528
  Serious: Yes (Death, Hospitalization)
  Sender: FDA-Public Use
  Company Number: BR-BAYER-2014-146804

PATIENT
  Age: 79 Year
  Sex: Female

DRUGS (4)
  1. NEXAVAR [Suspect]
     Active Substance: SORAFENIB
     Indication: HEPATIC NEOPLASM
     Dosage: 4 DF, QD
     Route: 048
     Dates: start: 20140525, end: 20140625
  2. AMLODIPINE BESILATE [Concomitant]
     Active Substance: AMLODIPINE BESYLATE
     Indication: HYPERTENSION
     Dosage: 1 DF, QD
     Route: 048
  3. NEXAVAR [Suspect]
     Active Substance: SORAFENIB
     Indication: HEPATIC NEOPLASM
     Dosage: 4 DF, QD
     Route: 048
     Dates: start: 20140912, end: 20140916
  4. ATENOLOL. [Concomitant]
     Active Substance: ATENOLOL
     Indication: HYPERTENSION
     Dosage: 1 DF, HS
     Route: 048

REACTIONS (11)
  - Prosopagnosia [Not Recovered/Not Resolved]
  - Tumour invasion [Fatal]
  - Aphasia [Not Recovered/Not Resolved]
  - Mobility decreased [Not Recovered/Not Resolved]
  - Cardiac arrest [Fatal]
  - Movement disorder [Not Recovered/Not Resolved]
  - Drug dose omission [None]
  - Eyelid function disorder [Not Recovered/Not Resolved]
  - Product use issue [None]
  - Headache [Not Recovered/Not Resolved]
  - Therapy cessation [None]

NARRATIVE: CASE EVENT DATE: 2014
